FAERS Safety Report 19398615 (Version 1)
Quarter: 2021Q2

REPORT INFORMATION
  Report Type: Spontaneous
  Country: US (occurrence: US)
  Receive Date: 20210609
  Receipt Date: 20210609
  Transmission Date: 20210717
  Serious: No
  Sender: FDA-Public Use
  Company Number: None

PATIENT
  Age: 77 Year
  Sex: Female
  Weight: 90.72 kg

DRUGS (22)
  1. PIOGLITAZONE. [Concomitant]
     Active Substance: PIOGLITAZONE
  2. CAPECITABINE. [Suspect]
     Active Substance: CAPECITABINE
     Indication: BREAST CANCER
     Dosage: ?          OTHER FREQUENCY:BID X 14 DAYS;?
     Route: 048
     Dates: start: 20210511
  3. MULTIVITAMIN [Concomitant]
     Active Substance: VITAMINS
  4. CYCLOBENZAPRINE. [Concomitant]
     Active Substance: CYCLOBENZAPRINE
  5. DIFLUCAN [Concomitant]
     Active Substance: FLUCONAZOLE
  6. LEVOTHYROXINE. [Concomitant]
     Active Substance: LEVOTHYROXINE
  7. LIDOCAINE?PRILOCAINE [Concomitant]
     Active Substance: LIDOCAINE\PRILOCAINE
  8. ALENDRONATE [Concomitant]
     Active Substance: ALENDRONATE SODIUM
  9. DULOXETINE. [Concomitant]
     Active Substance: DULOXETINE
  10. BENADRYL [Concomitant]
     Active Substance: DIPHENHYDRAMINE HYDROCHLORIDE
  11. DEXAMETHASONE. [Concomitant]
     Active Substance: DEXAMETHASONE
  12. DUKE^S MOUTHWASH [Concomitant]
  13. TRAMADOL. [Concomitant]
     Active Substance: TRAMADOL
  14. CAL?MAG?ZINC + D3 + B12 + K + MG [Concomitant]
  15. EPINEPHRINE. [Concomitant]
     Active Substance: EPINEPHRINE
  16. FERROUS SULFATE. [Concomitant]
     Active Substance: FERROUS SULFATE
  17. GLIPIZIDE. [Concomitant]
     Active Substance: GLIPIZIDE
  18. HYDROCHLOROTHIAZIDE. [Concomitant]
     Active Substance: HYDROCHLOROTHIAZIDE
  19. METFORMIN [Concomitant]
     Active Substance: METFORMIN HYDROCHLORIDE
  20. SIMVASTATIN. [Concomitant]
     Active Substance: SIMVASTATIN
  21. LOSARTAN. [Concomitant]
     Active Substance: LOSARTAN
  22. ZOFRAN [Concomitant]
     Active Substance: ONDANSETRON HYDROCHLORIDE

REACTIONS (4)
  - Dehydration [None]
  - Dizziness [None]
  - Diarrhoea [None]
  - Oral mucosal blistering [None]

NARRATIVE: CASE EVENT DATE: 20210609
